FAERS Safety Report 18258422 (Version 1)
Quarter: 2020Q3

REPORT INFORMATION
  Report Type: Other
  Country: US (occurrence: US)
  Receive Date: 20200911
  Receipt Date: 20200911
  Transmission Date: 20201103
  Serious: No
  Sender: FDA-Public Use
  Company Number: US-LEADIANT BIOSCIENCES INC-2019STPI000552

PATIENT

DRUGS (25)
  1. TAMSULOSIN [Concomitant]
     Active Substance: TAMSULOSIN
     Dosage: 0.4 MILLIGRAM
     Dates: start: 20190807, end: 20200203
  2. TIZANIDINE. [Concomitant]
     Active Substance: TIZANIDINE
     Dosage: 2 MILLIGRAM
     Dates: start: 20190911, end: 20191110
  3. OXYCODONE [Concomitant]
     Active Substance: OXYCODONE
     Dosage: 5 MILLIGRAM
     Dates: start: 20191018, end: 20191217
  4. MATULANE [Suspect]
     Active Substance: PROCARBAZINE HYDROCHLORIDE
     Indication: DIFFUSE LARGE B-CELL LYMPHOMA
     Dosage: 200 MILLIGRAM, QD
     Route: 048
     Dates: start: 20191004
  5. PLAQUENIL [Concomitant]
     Active Substance: HYDROXYCHLOROQUINE SULFATE
     Dosage: UNK
     Dates: start: 20190918, end: 20200316
  6. OXYCODONE [Concomitant]
     Active Substance: OXYCODONE
     Dosage: 5 MILLIGRAM
     Dates: start: 20191016, end: 20201116
  7. TIZANIDINE. [Concomitant]
     Active Substance: TIZANIDINE
     Dosage: 2 MILLIGRAM
     Dates: start: 20191016, end: 20191216
  8. OXYCODONE [Concomitant]
     Active Substance: OXYCODONE
     Dosage: 5 MILLIGRAM
     Dates: start: 20191104
  9. ALLOPURINOL. [Concomitant]
     Active Substance: ALLOPURINOL
     Dosage: 100 MILLIGRAM
     Dates: start: 20190603, end: 20191130
  10. FAMOTIDINE. [Concomitant]
     Active Substance: FAMOTIDINE
     Dosage: 40 MILLIGRAM
     Dates: start: 20191010, end: 20200407
  11. DEXILANT [Concomitant]
     Active Substance: DEXLANSOPRAZOLE
     Dosage: 60 MILLIGRAM
     Dates: start: 20190227, end: 20200216
  12. TERAZOSIN [Concomitant]
     Active Substance: TERAZOSIN HYDROCHLORIDE
  13. SUCRALFATE. [Concomitant]
     Active Substance: SUCRALFATE
     Dosage: 1 GRAM
     Dates: start: 20190215, end: 20191130
  14. METOPROLOL TARTRATE. [Concomitant]
     Active Substance: METOPROLOL TARTRATE
     Dosage: 25 MILLIGRAM
     Dates: start: 20190225, end: 20200311
  15. PLAQUENIL [Concomitant]
     Active Substance: HYDROXYCHLOROQUINE SULFATE
     Dosage: 200 MILLIGRAM
     Dates: start: 20190620, end: 20191217
  16. TRELEGY ELLIPTA [Concomitant]
     Active Substance: FLUTICASONE FUROATE\UMECLIDINIUM BROMIDE\VILANTEROL TRIFENATATE
     Dosage: UNK
     Dates: start: 20190719, end: 20200115
  17. DILTIAZEM. [Concomitant]
     Active Substance: DILTIAZEM
     Dosage: 160 MILLIGRAM
     Dates: start: 20190813, end: 20200215
  18. ONDANSETRON [Concomitant]
     Active Substance: ONDANSETRON
  19. OXYBUTYNIN. [Concomitant]
     Active Substance: OXYBUTYNIN CHLORIDE
     Dosage: 5 MILLIGRAM
     Dates: start: 20191012, end: 20191211
  20. DILTIAZEM. [Concomitant]
     Active Substance: DILTIAZEM
     Dosage: 160 MILLIGRAM
     Dates: start: 20190222, end: 20191116
  21. PREMARIN [Concomitant]
     Active Substance: ESTROGENS, CONJUGATED
     Dosage: 0.625 MILLIGRAM
     Dates: start: 20190606, end: 20191203
  22. SUCRALFATE. [Concomitant]
     Active Substance: SUCRALFATE
     Dosage: 1 GRAM
     Dates: start: 20190820, end: 20200216
  23. DEXAMETHASONE. [Concomitant]
     Active Substance: DEXAMETHASONE
     Dosage: 2 MILLIGRAM
     Dates: start: 20190911, end: 20191110
  24. FAMOTIDINE. [Concomitant]
     Active Substance: FAMOTIDINE
     Dosage: UNK
     Dates: start: 20191009, end: 20191208
  25. FAMOTIDINE. [Concomitant]
     Active Substance: FAMOTIDINE
     Dosage: 40 MILLIGRAM
     Dates: start: 20191104

REACTIONS (2)
  - Nausea [Not Recovered/Not Resolved]
  - Fatigue [Not Recovered/Not Resolved]
